FAERS Safety Report 21453483 (Version 1)
Quarter: 2022Q4

REPORT INFORMATION
  Report Type: Spontaneous
  Country: US (occurrence: None)
  Receive Date: 20221012
  Receipt Date: 20221012
  Transmission Date: 20230112
  Serious: Yes (Disabling)
  Sender: FDA-Public Use
  Company Number: None

PATIENT
  Age: 70 Year
  Sex: Female
  Weight: 90.72 kg

DRUGS (17)
  1. METFORMIN [Suspect]
     Active Substance: METFORMIN HYDROCHLORIDE
     Indication: Type 2 diabetes mellitus
     Dosage: FREQUENCY : TWICE A DAY;?
     Route: 048
     Dates: start: 20220322, end: 20220923
  2. ASPIRIN [Concomitant]
     Active Substance: ASPIRIN
  3. BACLOFEN [Concomitant]
  4. CELECOXIB [Concomitant]
  5. DULOXETINE [Concomitant]
  6. GLUCOSAMINE/CHONDROITON [Concomitant]
  7. JARDIANCE [Concomitant]
  8. K2+D3 [Concomitant]
  9. LASIX [Concomitant]
  10. LISINOPRIL [Concomitant]
  11. PRAMIPREXOLE [Concomitant]
  12. PREGABALIN [Concomitant]
  13. PROLIA [Concomitant]
  14. ROSUVASTATIN [Concomitant]
  15. TYLENOL ARTHRITIS [Concomitant]
  16. LIDOCAINE JELLY [Concomitant]
  17. NORCO [Concomitant]
     Active Substance: ACETAMINOPHEN\HYDROCODONE BITARTRATE

REACTIONS (13)
  - Fatigue [None]
  - Myalgia [None]
  - Feeling abnormal [None]
  - Diarrhoea [None]
  - Asthenia [None]
  - Weight decreased [None]
  - Therapy cessation [None]
  - Bone pain [None]
  - Therapy change [None]
  - Foot deformity [None]
  - Fibromyalgia [None]
  - Muscular weakness [None]
  - Osteoarthritis [None]

NARRATIVE: CASE EVENT DATE: 20220401
